FAERS Safety Report 20612425 (Version 2)
Quarter: 2022Q1

REPORT INFORMATION
  Report Type: Spontaneous
  Country: US (occurrence: US)
  Receive Date: 20220318
  Receipt Date: 20220330
  Transmission Date: 20220423
  Serious: No
  Sender: FDA-Public Use
  Company Number: US-BIOGEN-2022BI01104293

PATIENT
  Age: 78 Year
  Sex: Male
  Weight: 68.100 kg

DRUGS (12)
  1. ADUHELM [Suspect]
     Active Substance: ADUCANUMAB-AVWA
     Indication: Dementia Alzheimer^s type
     Dosage: 1ST DOSE
     Route: 042
     Dates: start: 20211005
  2. ADUHELM [Suspect]
     Active Substance: ADUCANUMAB-AVWA
     Dosage: 2ND DOSE
     Route: 042
     Dates: start: 20211102
  3. ADUHELM [Suspect]
     Active Substance: ADUCANUMAB-AVWA
     Dosage: 3RD DOSE
     Route: 042
     Dates: start: 20211123
  4. ADUHELM [Suspect]
     Active Substance: ADUCANUMAB-AVWA
     Dosage: 4TH DOSE
     Route: 042
     Dates: start: 20211221
  5. ADUHELM [Suspect]
     Active Substance: ADUCANUMAB-AVWA
     Dosage: 4TH DOSE
     Route: 042
     Dates: start: 20211221
  6. ADUHELM [Suspect]
     Active Substance: ADUCANUMAB-AVWA
     Dosage: 5TH DOSE
     Route: 042
     Dates: start: 20220118
  7. ADUHELM [Suspect]
     Active Substance: ADUCANUMAB-AVWA
     Dosage: 5TH DOSE
     Route: 042
     Dates: start: 20220118
  8. ADUHELM [Suspect]
     Active Substance: ADUCANUMAB-AVWA
     Dosage: 6TH DOSE
     Route: 042
     Dates: start: 20220215
  9. ADUHELM [Suspect]
     Active Substance: ADUCANUMAB-AVWA
     Dosage: 6TH DOSE
     Route: 042
     Dates: start: 20220215
  10. ASPIRIN [Concomitant]
     Active Substance: ASPIRIN
     Indication: Product used for unknown indication
     Route: 065
  11. NAMENDA [Concomitant]
     Active Substance: MEMANTINE HYDROCHLORIDE
     Indication: Product used for unknown indication
     Route: 065
  12. DONEPEZIL [Concomitant]
     Active Substance: DONEPEZIL
     Indication: Product used for unknown indication
     Route: 065

REACTIONS (2)
  - Amyloid related imaging abnormality-oedema/effusion [Not Recovered/Not Resolved]
  - Amyloid related imaging abnormality-microhaemorrhages and haemosiderin deposits [Not Recovered/Not Resolved]

NARRATIVE: CASE EVENT DATE: 20220222
